FAERS Safety Report 8051291-X (Version None)
Quarter: 2012Q1

REPORT INFORMATION
  Report Type: 
  Country: None (occurrence: None)
  Receive Date: 20120117
  Receipt Date: 20120109
  Transmission Date: 20120608
  Serious: Yes (Hospitalization, Other)
  Sender: FDA-Public Use
  Company Number: US-ASTRAZENECA-2011SE63391

PATIENT
  Age: 69 Year
  Sex: Female

DRUGS (5)
  1. ALBUTEROL [Concomitant]
  2. ASMANEX TWISTHALER [Concomitant]
  3. VENTOLIN HFA [Concomitant]
  4. PULMICORT-100 [Suspect]
     Route: 055
  5. PULMICORT-100 [Suspect]
     Route: 055

REACTIONS (13)
  - MONOPARESIS [None]
  - LIP BLISTER [None]
  - ARTHROPATHY [None]
  - OROPHARYNGEAL BLISTERING [None]
  - LIGAMENT RUPTURE [None]
  - ASTHMA [None]
  - WEIGHT DECREASED [None]
  - FALL [None]
  - DIABETES MELLITUS [None]
  - HYPERTENSION [None]
  - SLEEP APNOEA SYNDROME [None]
  - NERVE INJURY [None]
  - LUNG DISORDER [None]
